FAERS Safety Report 22167790 (Version 2)
Quarter: 2023Q2

REPORT INFORMATION
  Report Type: Spontaneous
  Country: CA (occurrence: CA)
  Receive Date: 20230403
  Receipt Date: 20230414
  Transmission Date: 20230721
  Serious: Yes (Life-Threatening, Hospitalization, Other)
  Sender: FDA-Public Use
  Company Number: CA-ORGANON-O2303CAN003029

PATIENT
  Age: 68 Year
  Sex: Female

DRUGS (10)
  1. SINEMET [Suspect]
     Active Substance: CARBIDOPA\LEVODOPA
     Indication: Parkinson^s disease
     Dosage: UNK
     Route: 065
  2. SINEMET [Suspect]
     Active Substance: CARBIDOPA\LEVODOPA
     Dosage: 4 EVERY 1 DAYS
     Route: 065
  3. SINEMET [Suspect]
     Active Substance: CARBIDOPA\LEVODOPA
     Dosage: 100 MILLIGRAM, 4 EVERY 1 DAYS
     Route: 065
  4. AMANTADINE [Suspect]
     Active Substance: AMANTADINE
     Indication: Parkinson^s disease
     Dosage: 100 MILLIGRAM, 2 EVERY 1 DAYS
     Route: 065
  5. PRAMIPEXOLE [Suspect]
     Active Substance: PRAMIPEXOLE
     Indication: Parkinson^s disease
     Dosage: 0.25 MILLIGRAM, 1 EVERY 1 DAYS; DOSAGE FORM; NOT SPECIFIED
     Route: 065
  6. PRAMIPEXOLE [Suspect]
     Active Substance: PRAMIPEXOLE
     Dosage: 0.25 MILLIGRAM, DOSAGE FORM : NOT SPECIFIED
     Route: 065
  7. PREDNISONE [Suspect]
     Active Substance: PREDNISONE
     Indication: Asthma
     Dosage: UNK, DOSAGE FORM: NOT SPECIFIED
     Route: 065
  8. BUDESONIDE\FORMOTEROL FUMARATE [Concomitant]
     Active Substance: BUDESONIDE\FORMOTEROL FUMARATE
     Indication: Asthma
     Dosage: UNK
  9. BUDESONIDE\FORMOTEROL FUMARATE [Concomitant]
     Active Substance: BUDESONIDE\FORMOTEROL FUMARATE
     Dosage: UNK
     Route: 065
  10. ALBUTEROL SULFATE [Concomitant]
     Active Substance: ALBUTEROL SULFATE
     Indication: Asthma
     Dosage: DOSAGE FORM: NOT SPECIFIED

REACTIONS (4)
  - Dyskinesia [Recovered/Resolved]
  - Dystonia [Recovered/Resolved]
  - Respiratory distress [Recovered/Resolved]
  - Stridor [Recovered/Resolved]
